FAERS Safety Report 11219696 (Version 3)
Quarter: 2015Q3

REPORT INFORMATION
  Report Type: Report from Study
  Country: US (occurrence: US)
  Receive Date: 20150625
  Receipt Date: 20150908
  Transmission Date: 20151125
  Serious: Yes (Other)
  Sender: FDA-Public Use
  Company Number: US-GLAXOSMITHKLINE-US2015087507

PATIENT
  Age: 77 Year
  Sex: Male
  Weight: 74.64 kg

DRUGS (15)
  1. TRAMETINIB [Suspect]
     Active Substance: TRAMETINIB
     Indication: ACUTE MYELOID LEUKAEMIA
     Dosage: 1.5 MG, UNK
     Route: 048
     Dates: start: 20150513, end: 20150610
  2. TAMSULOSIN [Concomitant]
     Active Substance: TAMSULOSIN
     Dosage: 0.4 MUG, UNK
     Route: 048
     Dates: start: 200803
  3. PROBIOTIC [Concomitant]
     Active Substance: PROBIOTICS NOS
     Dosage: 1 UNK UNK
     Route: 048
     Dates: start: 2014, end: 20150513
  4. ACYCLOVIR. [Concomitant]
     Active Substance: ACYCLOVIR
     Dosage: 400 MG, UNK
     Route: 048
     Dates: start: 20150513, end: 20150722
  5. INDAPAMIDE. [Concomitant]
     Active Substance: INDAPAMIDE
     Dosage: UNK
     Route: 048
     Dates: start: 2005, end: 20150429
  6. COMPAZINE [Concomitant]
     Active Substance: PROCHLORPERAZINE MALEATE
     Dosage: 5 MG, UNK
     Route: 048
     Dates: start: 20150513
  7. IMODIUM [Concomitant]
     Active Substance: LOPERAMIDE HYDROCHLORIDE
     Dosage: 2 MG, UNK
     Route: 048
     Dates: start: 20150530
  8. HYDROCORTISONE. [Concomitant]
     Active Substance: HYDROCORTISONE
     Dosage: 2.5 UNK, UNK
     Route: 061
     Dates: start: 20150521, end: 20150617
  9. AMG 232 [Suspect]
     Active Substance: INVESTIGATIONAL PRODUCT
     Indication: ACUTE MYELOID LEUKAEMIA
     Dosage: 60 MG, UNK
     Route: 048
     Dates: start: 20150513
  10. CARVEDILOL. [Concomitant]
     Active Substance: CARVEDILOL
     Dosage: 3.125 MG, UNK
     Route: 048
     Dates: start: 200704
  11. ZOFRAN [Concomitant]
     Active Substance: ONDANSETRON HYDROCHLORIDE
     Dosage: 8 MG, UNK
     Route: 048
     Dates: start: 20150513
  12. CALCIUM CARBONATE + MAGNESIUM CARBONATE + MAGNESIUM TRISILICATE [Concomitant]
     Dosage: 1 UNK, UNK
     Route: 048
     Dates: start: 20150515, end: 20150515
  13. AVODART [Concomitant]
     Active Substance: DUTASTERIDE
     Dosage: 0.5 MG, UNK
     Route: 048
     Dates: start: 200803
  14. METAMUCIL [Concomitant]
     Active Substance: PLANTAGO SEED
     Dosage: 1 UNK UNK
     Route: 048
     Dates: start: 20150513
  15. OMEPRAZOLE. [Concomitant]
     Active Substance: OMEPRAZOLE
     Dosage: 20 MG, UNK
     Route: 048
     Dates: start: 2008, end: 20150505

REACTIONS (1)
  - Detachment of retinal pigment epithelium [Recovered/Resolved]

NARRATIVE: CASE EVENT DATE: 20150610
